FAERS Safety Report 6655677-7 (Version None)
Quarter: 2010Q1

REPORT INFORMATION
  Report Type: 
  Country: None (occurrence: None)
  Receive Date: 20100329
  Receipt Date: 20100318
  Transmission Date: 20100710
  Serious: Yes (Other)
  Sender: FDA-Public Use
  Company Number: CA-JNJFOC-20090907560

PATIENT
  Sex: Male
  Weight: 84.8 kg

DRUGS (8)
  1. REMICADE [Suspect]
     Indication: RHEUMATOID ARTHRITIS
     Route: 042
  2. REMICADE [Suspect]
     Route: 042
  3. NOVO-GESIC FORTE [Concomitant]
  4. METHOTREXATE [Concomitant]
     Route: 048
  5. LIPITOR [Concomitant]
  6. NEXIUM [Concomitant]
  7. ASAPHEN [Concomitant]
  8. BRICANYL [Concomitant]

REACTIONS (1)
  - GRANULOMA [None]
